FAERS Safety Report 4314946-6 (Version None)
Quarter: 2004Q1

REPORT INFORMATION
  Report Type: 
  Country: None (occurrence: None)
  Receive Date: 20040310
  Receipt Date: 20040310
  Transmission Date: 20041129
  Serious: Yes (Other)
  Sender: FDA-Public Use
  Company Number: None

PATIENT
  Age: 66 Year
  Sex: Male
  Weight: 82 kg

DRUGS (9)
  1. COMTAN [Suspect]
     Indication: PARKINSON'S DISEASE
     Dosage: 200 MG 3 TIMES ORAL
     Route: 048
     Dates: start: 20040107, end: 20040111
  2. ZYPREXA [Suspect]
     Indication: MENTAL STATUS CHANGES
     Dosage: 2.5 MG TWICE DAIL ORAL
     Route: 048
     Dates: start: 20040107, end: 20040111
  3. ZOCOR [Concomitant]
  4. SINEMET [Concomitant]
  5. WARFARIN SODIUM [Concomitant]
  6. FLOMAX [Concomitant]
  7. ACETAMINOPHEN [Concomitant]
  8. CLARITIN [Concomitant]
  9. LORTAB [Concomitant]

REACTIONS (6)
  - HYPERNATRAEMIA [None]
  - HYPERPYREXIA [None]
  - INFECTION [None]
  - MENTAL STATUS CHANGES [None]
  - MUSCLE RIGIDITY [None]
  - NEUROLEPTIC MALIGNANT SYNDROME [None]
